FAERS Safety Report 6790697-3 (Version None)
Quarter: 2010Q2

REPORT INFORMATION
  Report Type: 
  Country: None (occurrence: None)
  Receive Date: 20100624
  Receipt Date: 20100615
  Transmission Date: 20101027
  Serious: Yes (Hospitalization)
  Sender: FDA-Public Use
  Company Number: BR-SANOFI-AVENTIS-2010SA034677

PATIENT
  Age: 44 Year
  Sex: Female
  Weight: 69 kg

DRUGS (10)
  1. LANTUS [Suspect]
     Dosage: 30IU IN THE MORNING AND 20 IU AT NIGHT
     Dates: start: 20080101, end: 20100416
  2. INSULIN PEN NOS [Suspect]
  3. APIDRA [Suspect]
     Route: 058
     Dates: start: 20080101, end: 20100416
  4. INSULIN PEN NOS [Suspect]
  5. ALL OTHER THERAPEUTIC PRODUCTS [Suspect]
     Indication: TRIGGER FINGER
     Dates: start: 20100413, end: 20100416
  6. DILTIAZEM [Concomitant]
  7. ALL OTHER THERAPEUTIC PRODUCTS [Concomitant]
     Dates: end: 20100428
  8. ASPIRIN [Concomitant]
  9. ATORVASTATIN [Concomitant]
  10. ATENOLOL [Concomitant]

REACTIONS (6)
  - BRADYCARDIA [None]
  - DIZZINESS [None]
  - FEELING ABNORMAL [None]
  - HYPERGLYCAEMIA [None]
  - HYPOTENSION [None]
  - PALPITATIONS [None]
